FAERS Safety Report 21659397 (Version 1)
Quarter: 2022Q4

REPORT INFORMATION
  Report Type: Spontaneous
  Country: CN (occurrence: CN)
  Receive Date: 20221129
  Receipt Date: 20221129
  Transmission Date: 20230113
  Serious: Yes (Hospitalization, Other)
  Sender: FDA-Public Use
  Company Number: CN-GILEAD-2022-0606657

PATIENT
  Age: 42 Year
  Sex: Male
  Weight: 75 kg

DRUGS (3)
  1. VEMLIDY [Suspect]
     Active Substance: TENOFOVIR ALAFENAMIDE FUMARATE
     Indication: Chronic hepatitis B
     Dosage: 1 DOSAGE FORM, QD
     Route: 048
     Dates: start: 20220901, end: 20220930
  2. PEGYLATED INTERFERON NOS [Suspect]
     Active Substance: PEGINTERFERON ALFA-2A OR PEGINTERFERON ALFA-2B OR PEGINTERFERON BETA-1A OR PEGINTERFERON LAMBDA-1A
     Indication: Product used for unknown indication
     Dosage: 180 UG/TIME, ONCE A WEEK
     Route: 058
     Dates: start: 20220901, end: 20220930
  3. HEROMBOPAG OLAMINE [Concomitant]

REACTIONS (3)
  - Pyrexia [Recovering/Resolving]
  - Hypothermia [Unknown]
  - Decreased appetite [Unknown]

NARRATIVE: CASE EVENT DATE: 20220902
